FAERS Safety Report 7562648-5 (Version None)
Quarter: 2011Q2

REPORT INFORMATION
  Report Type: 
  Country: None (occurrence: None)
  Receive Date: 20110622
  Receipt Date: 20110610
  Transmission Date: 20111010
  Serious: Yes (Hospitalization, Other)
  Sender: FDA-Public Use
  Company Number: AU-PFIZER INC-2011128956

PATIENT
  Age: 28 Year
  Sex: Female

DRUGS (5)
  1. CENTRUM [Concomitant]
     Dosage: UNKNOWN
  2. THIAMINE [Concomitant]
     Dosage: UNKNOWN
  3. VALIUM [Concomitant]
     Dosage: UNKNOWN
  4. ALCOHOL [Suspect]
     Dosage: UNKNOWN
  5. PRISTIQ [Suspect]
     Dosage: 100 MG, UNK

REACTIONS (2)
  - VISION BLURRED [None]
  - ALCOHOLISM [None]
